FAERS Safety Report 17327675 (Version 1)
Quarter: 2020Q1

REPORT INFORMATION
  Report Type: Spontaneous
  Country: US (occurrence: US)
  Receive Date: 20200127
  Receipt Date: 20200127
  Transmission Date: 20200409
  Serious: Yes (Hospitalization, Disabling)
  Sender: FDA-Public Use
  Company Number: US-JNJFOC-20200129659

PATIENT
  Age: 50 Year
  Sex: Female

DRUGS (1)
  1. INVOKANA [Suspect]
     Active Substance: CANAGLIFLOZIN
     Indication: DIABETES MELLITUS
     Dosage: HALF TABLETS IN A DAY
     Route: 048

REACTIONS (7)
  - Diabetic foot infection [Recovering/Resolving]
  - Prescribed underdose [Unknown]
  - Off label use [Unknown]
  - Limb amputation [Unknown]
  - Leg amputation [Unknown]
  - Gangrene [Unknown]
  - Osteomyelitis [Unknown]

NARRATIVE: CASE EVENT DATE: 20160723
